FAERS Safety Report 4380098-X (Version None)
Quarter: 2004Q2

REPORT INFORMATION
  Report Type: 
  Country: None (occurrence: None)
  Receive Date: 20040616
  Receipt Date: 20040209
  Transmission Date: 20050107
  Serious: Yes (Death, Hospitalization, Other)
  Sender: FDA-Public Use
  Company Number: A-US2004-04761

PATIENT
  Age: 66 Year
  Sex: Male
  Weight: 95.32 kg

DRUGS (8)
  1. TRACLEER [Suspect]
     Indication: COR PULMONALE
     Dosage: SEE IMAGE
     Route: 048
     Dates: start: 20030205, end: 20030302
  2. TRACLEER [Suspect]
     Indication: COR PULMONALE
     Dosage: SEE IMAGE
     Route: 048
     Dates: start: 20030303, end: 20030402
  3. . [Concomitant]
  4. DEMADEX [Concomitant]
  5. NIFEDIPINE [Concomitant]
  6. LIPITOR (AOTRVASTATIN) [Concomitant]
  7. K-DUR 10 [Concomitant]
  8. OXYGEN (OXYGEN) [Concomitant]

REACTIONS (13)
  - ALANINE AMINOTRANSFERASE INCREASED [None]
  - ASPARTATE AMINOTRANSFERASE INCREASED [None]
  - AZOTAEMIA [None]
  - BLOOD CREATININE INCREASED [None]
  - BLOOD UREA INCREASED [None]
  - CHEST PAIN [None]
  - DISEASE PROGRESSION [None]
  - EPISTAXIS [None]
  - INTERSTITIAL LUNG DISEASE [None]
  - LIVER FUNCTION TEST ABNORMAL [None]
  - PNEUMOTHORAX [None]
  - RESPIRATORY FAILURE [None]
  - SNEEZING [None]
